FAERS Safety Report 12658551 (Version 1)
Quarter: 2016Q3

REPORT INFORMATION
  Report Type: Spontaneous
  Country: US (occurrence: None)
  Receive Date: 20160816
  Receipt Date: 20160816
  Transmission Date: 20161109
  Serious: Yes (Other)
  Sender: FDA-Public Use
  Company Number: None

PATIENT
  Age: 62 Year
  Sex: Female
  Weight: 83.92 kg

DRUGS (2)
  1. LISINOPRIL. [Concomitant]
     Active Substance: LISINOPRIL
  2. PROPOFOL. [Suspect]
     Active Substance: PROPOFOL
     Indication: DIAGNOSTIC PROCEDURE
     Dates: start: 20160815, end: 20160815

REACTIONS (5)
  - Obstructive airways disorder [None]
  - Cough [None]
  - Hypersensitivity [None]
  - Lacrimation increased [None]
  - Sneezing [None]

NARRATIVE: CASE EVENT DATE: 20160815
